FAERS Safety Report 20536214 (Version 1)
Quarter: 2022Q1

REPORT INFORMATION
  Report Type: Spontaneous
  Country: GB (occurrence: GB)
  Receive Date: 20220302
  Receipt Date: 20220302
  Transmission Date: 20220423
  Serious: Yes (Life-Threatening, Hospitalization, Other)
  Sender: FDA-Public Use
  Company Number: None

PATIENT
  Age: 78 Year
  Sex: Male

DRUGS (13)
  1. METHOTREXATE [Interacting]
     Active Substance: METHOTREXATE
     Indication: Rheumatoid arthritis
     Dosage: ON SUNDAYS
  2. TRIMETHOPRIM [Interacting]
     Active Substance: TRIMETHOPRIM
     Indication: Epididymitis
     Dosage: FOR FOUR WEEKS
  3. ALLOPURINOL [Concomitant]
     Active Substance: ALLOPURINOL
  4. ATORVASTATIN [Concomitant]
     Active Substance: ATORVASTATIN
  5. BENDROFLUMETHIAZIDE [Concomitant]
     Active Substance: BENDROFLUMETHIAZIDE
  6. BEZAFIBRATE [Concomitant]
     Active Substance: BEZAFIBRATE
  7. DOXAZOSIN [Concomitant]
     Active Substance: DOXAZOSIN MESYLATE
  8. FOLIC ACID [Concomitant]
     Active Substance: FOLIC ACID
  9. NIFEDIPINE [Concomitant]
     Active Substance: NIFEDIPINE
  10. PREDNISOLONE [Concomitant]
     Active Substance: PREDNISOLONE
  11. PROPRANOLOL [Concomitant]
     Active Substance: PROPRANOLOL HYDROCHLORIDE
  12. RAMIPRIL [Concomitant]
     Active Substance: RAMIPRIL
  13. SULFASALAZINE [Concomitant]
     Active Substance: SULFASALAZINE

REACTIONS (6)
  - Labelled drug-drug interaction issue [Unknown]
  - Pancytopenia [Recovering/Resolving]
  - Neutropenic sepsis [Unknown]
  - Epididymitis [Unknown]
  - Acute kidney injury [Unknown]
  - Condition aggravated [Unknown]

NARRATIVE: CASE EVENT DATE: 20220204
